FAERS Safety Report 8082531-9 (Version None)
Quarter: 2012Q1

REPORT INFORMATION
  Report Type: 
  Country: None (occurrence: None)
  Receive Date: 20120127
  Receipt Date: 20110217
  Transmission Date: 20120608
  Serious: No
  Sender: FDA-Public Use
  Company Number: US-ABBOTT-11P-163-0706713-00

PATIENT
  Age: 24 Year
  Sex: Female
  Weight: 60.836 kg

DRUGS (2)
  1. HUMIRA [Suspect]
     Indication: ARTHRITIS REACTIVE
  2. HUMIRA [Suspect]
     Indication: ARTHRALGIA
     Dates: start: 20101201, end: 20110101

REACTIONS (3)
  - RASH [None]
  - PRURITUS [None]
  - ACNE [None]
